FAERS Safety Report 5191323-X (Version None)
Quarter: 2006Q4

REPORT INFORMATION
  Report Type: 
  Country: None (occurrence: None)
  Receive Date: 20061211
  Receipt Date: 20061211
  Transmission Date: 20070319
  Serious: Yes (Other)
  Sender: FDA-Public Use
  Company Number: None

PATIENT
  Age: 55 Year
  Sex: Female

DRUGS (4)
  1. BACLOFEN [Suspect]
     Indication: MULTIPLE SCLEROSIS
     Dosage: 10MG TO 20MG BY MOUTH EVERY 4 HOURS AS NEEDED
     Route: 048
     Dates: start: 20060921, end: 20060923
  2. OXYBUTYNIN [Concomitant]
  3. SYNTHROID [Concomitant]
  4. DIOVAN [Concomitant]

REACTIONS (1)
  - CHEST PAIN [None]
